FAERS Safety Report 5710632-6 (Version None)
Quarter: 2008Q2

REPORT INFORMATION
  Report Type: 
  Country: None (occurrence: None)
  Receive Date: 20080415
  Receipt Date: 20080409
  Transmission Date: 20081010
  Serious: Yes (Death)
  Sender: FDA-Public Use
  Company Number: 056-C5013-07090207

PATIENT
  Age: 85 Year
  Sex: Female

DRUGS (8)
  1. CC-5013 (LENALIDOMIDE) (CAPSULES) [Suspect]
     Indication: MULTIPLE MYELOMA
     Dosage: 25 MG, DAILY, ORAL
     Route: 048
     Dates: start: 20070720, end: 20070829
  2. DEXAMETHASONE TAB [Concomitant]
  3. ARANESP [Concomitant]
  4. DURAGESIC [Concomitant]
  5. NEXIUM [Concomitant]
  6. MOTILYO (DOMPERIDONE) [Concomitant]
  7. ASPEGIC 1000 [Concomitant]
  8. MOVICOL (NULYTELY) [Concomitant]

REACTIONS (5)
  - C-REACTIVE PROTEIN INCREASED [None]
  - HAEMOGLOBIN DECREASED [None]
  - PLATELET COUNT DECREASED [None]
  - SUDDEN DEATH [None]
  - WHITE BLOOD CELL COUNT DECREASED [None]
